FAERS Safety Report 20889208 (Version 1)
Quarter: 2022Q2

REPORT INFORMATION
  Report Type: Spontaneous
  Country: ES (occurrence: ES)
  Receive Date: 20220530
  Receipt Date: 20220530
  Transmission Date: 20220720
  Serious: Yes (Other)
  Sender: FDA-Public Use
  Company Number: None

PATIENT
  Age: 73 Year
  Sex: Male

DRUGS (1)
  1. PEMBROLIZUMAB [Suspect]
     Active Substance: PEMBROLIZUMAB
     Indication: Adenocarcinoma of colon
     Dosage: UNK
     Dates: start: 20220126, end: 20220126

REACTIONS (3)
  - Flushing [Unknown]
  - Hypertension [Unknown]
  - Pruritus [Unknown]

NARRATIVE: CASE EVENT DATE: 20220126
